FAERS Safety Report 23678659 (Version 1)
Quarter: 2024Q1

REPORT INFORMATION
  Report Type: Report from Study
  Country: CA (occurrence: CA)
  Receive Date: 20240327
  Receipt Date: 20240327
  Transmission Date: 20240410
  Serious: Yes (Hospitalization)
  Sender: FDA-Public Use
  Company Number: CA-JNJFOC-20240362647

PATIENT
  Age: 92 Year
  Sex: Male

DRUGS (1)
  1. AKEEGA [Suspect]
     Active Substance: ABIRATERONE ACETATE\NIRAPARIB TOSYLATE MONOHYDRATE
     Indication: Product used for unknown indication
     Dosage: 100 MG/500 MG 2 TABLETS BY MOUTH, ONCE A DAY
     Route: 048

REACTIONS (2)
  - Localised infection [Unknown]
  - Peripheral swelling [Unknown]
